FAERS Safety Report 20076553 (Version 2)
Quarter: 2021Q4

REPORT INFORMATION
  Report Type: Report from Study
  Country: US (occurrence: US)
  Receive Date: 20211116
  Receipt Date: 20211129
  Transmission Date: 20220303
  Serious: Yes (Hospitalization)
  Sender: FDA-Public Use
  Company Number: US-EXELIXIS-CABO-21044207

PATIENT
  Age: 78 Year
  Sex: Female

DRUGS (3)
  1. COMETRIQ [Suspect]
     Active Substance: CABOZANTINIB S-MALATE
     Indication: Papillary thyroid cancer
     Dosage: 60 MG, QD
     Route: 048
     Dates: start: 20210812, end: 20210919
  2. COMETRIQ [Suspect]
     Active Substance: CABOZANTINIB S-MALATE
     Indication: Metastases to bone
     Dosage: 60 MG, QD
     Route: 048
     Dates: end: 202110
  3. COMETRIQ [Suspect]
     Active Substance: CABOZANTINIB S-MALATE
     Dosage: 60 MG, QD
     Route: 048
     Dates: end: 20211101

REACTIONS (11)
  - Pain [Unknown]
  - Renal disorder [Recovered/Resolved]
  - Decreased appetite [Recovering/Resolving]
  - Asthenia [Recovering/Resolving]
  - Abdominal pain upper [Recovered/Resolved]
  - Dehydration [Recovered/Resolved]
  - Nausea [Unknown]
  - Vomiting [Unknown]
  - Alopecia [Recovering/Resolving]
  - Weight decreased [Recovering/Resolving]
  - Off label use [Unknown]

NARRATIVE: CASE EVENT DATE: 20210901
